FAERS Safety Report 6745841-0 (Version None)
Quarter: 2010Q2

REPORT INFORMATION
  Report Type: 
  Country: None (occurrence: None)
  Receive Date: 20100528
  Receipt Date: 20100517
  Transmission Date: 20101027
  Serious: Yes (Death)
  Sender: FDA-Public Use
  Company Number: US-SANOFI-AVENTIS-2010SA028512

PATIENT
  Age: 79 Year
  Sex: Male

DRUGS (5)
  1. LOVENOX [Suspect]
     Route: 058
     Dates: start: 20071031, end: 20071031
  2. LOVENOX [Suspect]
     Route: 058
     Dates: start: 20071101, end: 20071105
  3. COUMADIN [Suspect]
     Dates: end: 20071030
  4. COUMADIN [Suspect]
     Dates: start: 20071031, end: 20071105
  5. COUMADIN [Suspect]
     Dates: start: 20071114, end: 20071125

REACTIONS (5)
  - ATELECTASIS [None]
  - HAEMATOCRIT DECREASED [None]
  - HAEMOGLOBIN DECREASED [None]
  - INTRA-ABDOMINAL HAEMORRHAGE [None]
  - PLEURAL EFFUSION [None]
